FAERS Safety Report 9410292 (Version 1)
Quarter: 2013Q3

REPORT INFORMATION
  Report Type: Spontaneous
  Country: US (occurrence: US)
  Receive Date: 20130719
  Receipt Date: 20130719
  Transmission Date: 20140515
  Serious: No
  Sender: FDA-Public Use
  Company Number: US-PFIZER INC-2013212200

PATIENT
  Age: 67 Year
  Sex: Female
  Weight: 136 kg

DRUGS (5)
  1. PRISTIQ [Suspect]
     Indication: DEPRESSION
     Dosage: 50 MG, 1X/DAY
     Route: 048
     Dates: start: 20130424, end: 2013
  2. PRISTIQ [Suspect]
     Dosage: 100 MG, 1X/DAY
     Route: 048
     Dates: start: 2013, end: 2013
  3. PRISTIQ [Suspect]
     Dosage: 50 MG, 1X/DAY
     Route: 048
     Dates: start: 2013, end: 2013
  4. PRISTIQ [Suspect]
     Dosage: 50 MG, ALTERNATE DAY (ONE DAY ON, ONE DAY OFF)
     Route: 048
     Dates: start: 2013
  5. XANAX [Concomitant]
     Indication: ANXIETY
     Dosage: UNK, AS NEEDED

REACTIONS (4)
  - Abnormal dreams [Unknown]
  - Muscle spasms [Unknown]
  - Headache [Unknown]
  - Vision blurred [Unknown]
